FAERS Safety Report 8445484-7 (Version None)
Quarter: 2012Q2

REPORT INFORMATION
  Report Type: 
  Country: None (occurrence: None)
  Receive Date: 20120323
  Receipt Date: 20111204
  Transmission Date: 20120825
  Serious: Yes (Other)
  Sender: FDA-Public Use
  Company Number: 163-21880-11103391

PATIENT
  Age: 69 Year
  Sex: Female

DRUGS (3)
  1. VELCADE [Concomitant]
  2. LENALIDOMIDE [Suspect]
     Indication: MULTIPLE MYELOMA
     Dosage: 10 MG, X 21 CAPS, PO
     Route: 048
     Dates: start: 20110318
  3. RANEXA [Concomitant]

REACTIONS (1)
  - DEEP VEIN THROMBOSIS [None]
